FAERS Safety Report 12602089 (Version 1)
Quarter: 2016Q3

REPORT INFORMATION
  Report Type: Spontaneous
  Country: US (occurrence: US)
  Receive Date: 20160728
  Receipt Date: 20160728
  Transmission Date: 20161109
  Serious: No
  Sender: FDA-Public Use
  Company Number: US-PFIZER INC-2016327404

PATIENT
  Sex: Male

DRUGS (1)
  1. EPLERENONE. [Suspect]
     Active Substance: EPLERENONE
     Dosage: 50 MG, UNK

REACTIONS (4)
  - Abdominal discomfort [Unknown]
  - Dizziness [Unknown]
  - Drug ineffective [Unknown]
  - Headache [Unknown]
